FAERS Safety Report 9862138 (Version 1)
Quarter: 2014Q1

REPORT INFORMATION
  Report Type: Spontaneous
  Country: US (occurrence: US)
  Receive Date: 20140203
  Receipt Date: 20140203
  Transmission Date: 20141002
  Serious: No
  Sender: FDA-Public Use
  Company Number: US-TEVA-460355USA

PATIENT
  Sex: Female

DRUGS (2)
  1. PLAN B [Suspect]
     Indication: POST COITAL CONTRACEPTION
     Route: 048
  2. PLAN B [Suspect]
     Route: 048

REACTIONS (2)
  - Nausea [Unknown]
  - Menstruation irregular [Unknown]
